FAERS Safety Report 18554683 (Version 1)
Quarter: 2020Q4

REPORT INFORMATION
  Report Type: Spontaneous
  Country: US (occurrence: US)
  Receive Date: 20201127
  Receipt Date: 20201127
  Transmission Date: 20210114
  Serious: Yes (Other)
  Sender: FDA-Public Use
  Company Number: US-JNJFOC-20200807306

PATIENT
  Age: 22 Year
  Sex: Female

DRUGS (1)
  1. NEUTROGENA ULTRA SHEER SUNSCREEN BROAD SPECTRUM SPF 70 [Suspect]
     Active Substance: AVOBENZONE\HOMOSALATE\OCTISALATE\OCTOCRYLENE\OXYBENZONE
     Indication: PRODUCT USED FOR UNKNOWN INDICATION
     Dosage: APPLIED EVERY HOUR FOR 5 HOURS, 70 SPF
     Route: 061
     Dates: start: 20200726, end: 20200726

REACTIONS (9)
  - Dehydration [Unknown]
  - Burns second degree [Unknown]
  - Sunburn [Unknown]
  - Heart rate increased [Unknown]
  - Drug ineffective [Unknown]
  - Dizziness [Unknown]
  - Application site scar [Recovering/Resolving]
  - Nerve injury [Unknown]
  - Vomiting [Unknown]

NARRATIVE: CASE EVENT DATE: 202007
